FAERS Safety Report 25017935 (Version 1)
Quarter: 2025Q1

REPORT INFORMATION
  Report Type: Spontaneous
  Country: ES (occurrence: None)
  Receive Date: 20250227
  Receipt Date: 20250227
  Transmission Date: 20250409
  Serious: Yes (Other)
  Sender: INCYTE
  Company Number: ES-INCYTE CORPORATION-2025IN002018

PATIENT

DRUGS (1)
  1. TAFASITAMAB [Suspect]
     Active Substance: TAFASITAMAB
     Route: 065

REACTIONS (1)
  - Immune thrombocytopenia [Unknown]
